FAERS Safety Report 10883924 (Version 1)
Quarter: 2015Q1

REPORT INFORMATION
  Report Type: Report from Study
  Country: AU (occurrence: AU)
  Receive Date: 20150304
  Receipt Date: 20150304
  Transmission Date: 20150721
  Serious: Yes (Hospitalization)
  Sender: FDA-Public Use
  Company Number: AU-INDICUS PHARMA-000319

PATIENT
  Age: 54 Year
  Sex: Female

DRUGS (10)
  1. METFORMIN [Suspect]
     Active Substance: METFORMIN HYDROCHLORIDE
     Dosage: IMMEDIATE RELEASE PREPARATION
  2. THIORIDAZINE [Suspect]
     Active Substance: THIORIDAZINE
  3. CODEINE [Suspect]
     Active Substance: CODEINE
  4. PARACETAMOL [Suspect]
     Active Substance: ACETAMINOPHEN
  5. SIMVASTATIN. [Suspect]
     Active Substance: SIMVASTATIN
  6. RANITIDINE [Suspect]
     Active Substance: RANITIDINE\RANITIDINE HYDROCHLORIDE
  7. OXAZEPAM. [Suspect]
     Active Substance: OXAZEPAM
  8. DOXEPIN/DOXEPIN HYDROCHLORIDE [Suspect]
     Active Substance: DOXEPIN HYDROCHLORIDE
  9. QUINIDINE [Suspect]
     Active Substance: QUINIDINE
  10. ENALAPRIL [Suspect]
     Active Substance: ENALAPRIL

REACTIONS (4)
  - Hypotension [Unknown]
  - Intentional overdose [Unknown]
  - Tachycardia [Unknown]
  - Coma [Unknown]
